FAERS Safety Report 5011578-1 (Version None)
Quarter: 2006Q2

REPORT INFORMATION
  Report Type: 
  Country: None (occurrence: None)
  Receive Date: 20060524
  Receipt Date: 20060511
  Transmission Date: 20061013
  Serious: No
  Sender: FDA-Public Use
  Company Number: EM2006-0264

PATIENT
  Sex: Male

DRUGS (8)
  1. PROLEUKIN [Suspect]
     Indication: RECTAL CANCER STAGE IV
     Dosage: SEE IMAGE
     Dates: start: 20040101
  2. PROLEUKIN [Suspect]
     Indication: RECTAL CANCER STAGE IV
     Dosage: SEE IMAGE
     Dates: start: 20060511
  3. EFAVIRENZ [Concomitant]
  4. ABACAVIR [Concomitant]
  5. OXYCODONE (OXYCODONE) [Concomitant]
  6. BLUE SCORPION VENOM [Concomitant]
  7. LAMIVUDINE [Concomitant]
  8. NEUPOGEN [Concomitant]

REACTIONS (7)
  - BLADDER OBSTRUCTION [None]
  - DYSPNOEA [None]
  - PHARMACEUTICAL PRODUCT COMPLAINT [None]
  - POOR QUALITY DRUG ADMINISTERED [None]
  - SCAR [None]
  - URINARY TRACT INFECTION [None]
  - URINARY TRACT OBSTRUCTION [None]
